FAERS Safety Report 8416703 (Version 2)
Quarter: 2018Q1

REPORT INFORMATION
  Report Type: Spontaneous
  Country: JP (occurrence: JP)
  Receive Date: 20120220
  Receipt Date: 20180221
  Transmission Date: 20180509
  Serious: Yes (Other)
  Sender: FDA-Public Use
  Company Number: JP-BRACCO-005641

PATIENT
  Age: 66 Year
  Sex: Male

DRUGS (3)
  1. TIARAMIDE HYDROCHLORIDE [Concomitant]
     Active Substance: TIARAMIDE HYDROCHLORIDE
     Indication: ORAL HERPES
     Dates: start: 2006, end: 2008
  2. VIDARABINE [Concomitant]
     Active Substance: VIDARABINE
     Indication: ORAL HERPES
     Dosage: OINTMENT
     Dates: start: 2006, end: 2008
  3. IOPAMIRON [Suspect]
     Active Substance: IOPAMIDOL
     Indication: COMPUTERISED TOMOGRAM
     Dosage: 100 ML, SINGLE
     Route: 042
     Dates: start: 200803, end: 200803

REACTIONS (1)
  - Drug eruption [Recovered/Resolved]

NARRATIVE: CASE EVENT DATE: 200803
